FAERS Safety Report 7152253 (Version 3)
Quarter: 2014Q2

REPORT INFORMATION
  Report Type: Spontaneous
  Country: CA (occurrence: CA)
  Receive Date: 20091019
  Receipt Date: 20140514
  Transmission Date: 20141212
  Serious: Yes (Other)
  Sender: FDA-Public Use
  Company Number: CA-PFIZER INC-2009279889

PATIENT
  Age: 52 Year
  Sex: Male

DRUGS (30)
  1. VIRACEPT [Suspect]
     Indication: HIV INFECTION
     Dosage: UNK, EVERY 9 MONTH
  2. NELFINAVIR MESILATE [Suspect]
     Indication: HIV INFECTION
     Dosage: UNK
  3. DELAVIRDINE [Suspect]
     Indication: HIV INFECTION
     Dosage: UNK
  4. ZIDOVUDINE [Suspect]
     Indication: HIV INFECTION
     Dosage: UNK
  5. LAMIVUDINE [Suspect]
     Indication: HIV INFECTION
     Dosage: UNK
  6. DIDANOSINE [Suspect]
     Indication: HIV INFECTION
     Dosage: UNK
  7. STAVUDINE [Suspect]
     Indication: HIV INFECTION
     Dosage: UNK
  8. ABACAVIR [Suspect]
     Indication: HIV INFECTION
     Dosage: UNK
  9. NEVIRAPINE [Suspect]
     Indication: HIV INFECTION
     Dosage: UNK
  10. EFAVIRENZ [Suspect]
     Indication: HIV INFECTION
     Dosage: UNK
  11. INDINAVIR [Suspect]
     Indication: HIV INFECTION
     Dosage: UNK
  12. SAQUINAVIR [Suspect]
     Indication: HIV INFECTION
     Dosage: UNK
     Route: 048
  13. LOPINAVIR [Suspect]
     Indication: HIV INFECTION
     Dosage: UNK
  14. RITONAVIR [Suspect]
     Indication: HIV INFECTION
     Dosage: UNK
  15. TENOFOVIR [Suspect]
     Indication: HIV INFECTION
     Dosage: UNK
  16. DARUNAVIR [Suspect]
     Indication: HIV INFECTION
     Dosage: UNK
  17. ETRAVIRINE [Suspect]
     Indication: HIV INFECTION
     Dosage: UNK
  18. RALTEGRAVIR [Suspect]
     Indication: HIV INFECTION
     Dosage: UNK
  19. CRIXIVAN [Suspect]
     Dosage: UNK
  20. FUZEON [Suspect]
     Route: 058
  21. INTELENCE [Suspect]
  22. ISENTRESS [Suspect]
     Route: 048
  23. KALETRA [Suspect]
  24. PREZISTA [Suspect]
  25. RESCRIPTOR [Suspect]
  26. SUSTIVA [Suspect]
     Route: 048
  27. VIDEX EC [Suspect]
     Route: 048
  28. VIREAD [Suspect]
  29. ZERIT [Suspect]
  30. ZIAGEN [Suspect]

REACTIONS (5)
  - Progressive external ophthalmoplegia [Unknown]
  - Diplopia [Unknown]
  - Mitochondrial toxicity [Unknown]
  - Lipodystrophy acquired [Unknown]
  - Eyelid ptosis [Unknown]
